FAERS Safety Report 5286444-7 (Version None)
Quarter: 2007Q1

REPORT INFORMATION
  Report Type: 
  Country: None (occurrence: None)
  Receive Date: 20070116
  Receipt Date: 20061023
  Transmission Date: 20070707
  Serious: No
  Sender: FDA-Public Use
  Company Number: 2006SP003799

PATIENT
  Age: 72 Year
  Sex: Female
  Weight: 40.8237 kg

DRUGS (1)
  1. LUNESTA [Suspect]
     Indication: INSOMNIA
     Dosage: 1 MG; PRN; ORAL
     Route: 048
     Dates: start: 20061001, end: 20061001

REACTIONS (2)
  - CONSTIPATION [None]
  - DIZZINESS [None]
